FAERS Safety Report 5464421-0 (Version None)
Quarter: 2007Q3

REPORT INFORMATION
  Report Type: 
  Country: None (occurrence: None)
  Receive Date: 20070921
  Receipt Date: 20070918
  Transmission Date: 20080115
  Serious: Yes (Other)
  Sender: FDA-Public Use
  Company Number: US-JNJFOC-20070903614

PATIENT
  Age: 74 Year
  Sex: Female
  Weight: 55.79 kg

DRUGS (6)
  1. EXTRA STRENGTH TYLENOL [Suspect]
     Indication: PYREXIA
  2. EXTRA STRENGTH TYLENOL [Suspect]
     Indication: PAIN
     Dosage: 1000 MG EVERY 4-6 HOURS AS NEEDED
  3. TENORMIN [Concomitant]
     Indication: HYPERTENSION
  4. LIPITOR [Concomitant]
     Indication: BLOOD CHOLESTEROL INCREASED
  5. MULTI-VITAMIN [Concomitant]
     Indication: ROUTINE HEALTH MAINTENANCE
  6. CALCIUM [Concomitant]
     Indication: NUTRITIONAL SUPPORT

REACTIONS (2)
  - CHROMATURIA [None]
  - MENORRHAGIA [None]
